FAERS Safety Report 4679315-8 (Version None)
Quarter: 2005Q2

REPORT INFORMATION
  Report Type: 
  Country: None (occurrence: None)
  Receive Date: 20050602
  Receipt Date: 20050520
  Transmission Date: 20051028
  Serious: Yes (Other)
  Sender: FDA-Public Use
  Company Number: AU-BRISTOL-MYERS SQUIBB COMPANY-12975660

PATIENT
  Sex: Male

DRUGS (1)
  1. DICLOCIL INJ [Suspect]
     Indication: BONE INFECTION
     Route: 042
     Dates: end: 20050501

REACTIONS (1)
  - RENAL TUBULAR ACIDOSIS [None]
